FAERS Safety Report 7400822-9 (Version None)
Quarter: 2011Q2

REPORT INFORMATION
  Report Type: 
  Country: None (occurrence: None)
  Receive Date: 20110407
  Receipt Date: 20101014
  Transmission Date: 20111010
  Serious: Yes (Hospitalization)
  Sender: FDA-Public Use
  Company Number: US-BAYER-201018770NA

PATIENT
  Sex: Female
  Weight: 83.9 kg

DRUGS (8)
  1. NAPROXEN [Concomitant]
  2. ALBUTEROL [Concomitant]
  3. DARVON [Concomitant]
  4. NSAID'S [Concomitant]
  5. YAZ [Suspect]
     Indication: PRODUCT USED FOR UNKNOWN INDICATION
     Dosage: UNK UNK, UNK
     Route: 048
     Dates: start: 20030101, end: 20070101
  6. PHENERGAN [Concomitant]
  7. ADVAIR HFA [Concomitant]
  8. VICODIN [Concomitant]

REACTIONS (4)
  - PAIN [None]
  - CHOLELITHIASIS [None]
  - CHOLECYSTECTOMY [None]
  - CHOLECYSTITIS ACUTE [None]
